FAERS Safety Report 22983680 (Version 2)
Quarter: 2024Q1

REPORT INFORMATION
  Report Type: Spontaneous
  Country: US (occurrence: US)
  Receive Date: 20230926
  Receipt Date: 20240308
  Transmission Date: 20240409
  Serious: Yes (Other)
  Sender: FDA-Public Use
  Company Number: US-UCBSA-2023046186

PATIENT
  Age: 59 Year
  Sex: Female

DRUGS (1)
  1. CIMZIA [Suspect]
     Active Substance: CERTOLIZUMAB PEGOL
     Indication: Rheumatoid arthritis
     Dosage: 200 MILLIGRAM, OTHER
     Route: 058
     Dates: start: 202002

REACTIONS (5)
  - Ear neoplasm [Unknown]
  - Tooth infection [Unknown]
  - Viral infection [Unknown]
  - Ear infection [Unknown]
  - Infection [Unknown]

NARRATIVE: CASE EVENT DATE: 20211212
